FAERS Safety Report 19861584 (Version 1)
Quarter: 2021Q3

REPORT INFORMATION
  Report Type: Spontaneous
  Country: US (occurrence: US)
  Receive Date: 20210920
  Receipt Date: 20210920
  Transmission Date: 20211014
  Serious: No
  Sender: FDA-Public Use
  Company Number: US-PFIZER INC-2021287985

PATIENT
  Age: 77 Year
  Sex: Female
  Weight: 97.07 kg

DRUGS (1)
  1. LEVOTHYROXINE SODIUM. [Suspect]
     Active Substance: LEVOTHYROXINE SODIUM
     Dosage: 112 UG
     Dates: start: 202012

REACTIONS (4)
  - Influenza like illness [Unknown]
  - Chills [Unknown]
  - Feeling abnormal [Unknown]
  - Drug ineffective [Unknown]
